FAERS Safety Report 5928952-9 (Version None)
Quarter: 2008Q4

REPORT INFORMATION
  Report Type: 
  Country: None (occurrence: None)
  Receive Date: 20081024
  Receipt Date: 20081013
  Transmission Date: 20090506
  Serious: Yes (Hospitalization)
  Sender: FDA-Public Use
  Company Number: US-BAXTER-2008BH010967

PATIENT
  Age: 74 Year
  Sex: Female

DRUGS (2)
  1. DIANEAL [Suspect]
     Indication: PERITONEAL DIALYSIS
     Dosage: DOSE UNIT:UNKNOWN
     Route: 033
  2. DIANEAL [Suspect]
     Indication: PERITONEAL DIALYSIS
     Dosage: DOSE UNIT:UNKNOWN
     Route: 033

REACTIONS (6)
  - DYSPNOEA [None]
  - FAILURE TO THRIVE [None]
  - FLUID RETENTION [None]
  - HYPERTENSION [None]
  - INFUSION SITE INFECTION [None]
  - PERITONITIS BACTERIAL [None]
